FAERS Safety Report 8032877-5 (Version None)
Quarter: 2012Q1

REPORT INFORMATION
  Report Type: 
  Country: None (occurrence: None)
  Receive Date: 20120110
  Receipt Date: 20120106
  Transmission Date: 20120608
  Serious: Yes (Disabling, Other)
  Sender: FDA-Public Use
  Company Number: US-PFIZER INC-2012004732

PATIENT

DRUGS (1)
  1. NORVASC [Suspect]
     Dosage: UNK

REACTIONS (1)
  - CORONARY ARTERY BYPASS [None]
